FAERS Safety Report 5753827-8 (Version None)
Quarter: 2008Q2

REPORT INFORMATION
  Report Type: 
  Country: None (occurrence: None)
  Receive Date: 20080530
  Receipt Date: 20080523
  Transmission Date: 20081010
  Serious: Yes (Hospitalization)
  Sender: FDA-Public Use
  Company Number: JP-MERCK-0805USA05706

PATIENT
  Age: 75 Year
  Sex: Female

DRUGS (3)
  1. NOVOLIN R [Concomitant]
     Indication: DIABETES MELLITUS
     Route: 058
  2. FOSAMAX [Suspect]
     Indication: OSTEOPOROSIS
     Route: 048
     Dates: start: 20080502, end: 20080502
  3. LIPITOR [Concomitant]
     Indication: HYPERLIPIDAEMIA
     Route: 048

REACTIONS (2)
  - MOVEMENT DISORDER [None]
  - PAIN [None]
